FAERS Safety Report 8817653 (Version 1)
Quarter: 2012Q4

REPORT INFORMATION
  Report Type: 
  Country: US (occurrence: US)
  Receive Date: 20121001
  Receipt Date: 20121001
  Transmission Date: 20130627
  Serious: Yes (Other)
  Sender: FDA-Public Use
  Company Number: PHEH2012US019099

PATIENT
  Sex: Female

DRUGS (1)
  1. AREDIA [Suspect]
     Dosage: 60 mg, QMO
     Route: 042

REACTIONS (1)
  - Pulmonary oedema [Unknown]
